FAERS Safety Report 15187184 (Version 1)
Quarter: 2018Q3

REPORT INFORMATION
  Report Type: Report from Study
  Country: US (occurrence: US)
  Receive Date: 20180723
  Receipt Date: 20180723
  Transmission Date: 20181010
  Serious: No
  Sender: FDA-Public Use
  Company Number: US-EXELIXIS-CABO-17010493

PATIENT
  Sex: Male

DRUGS (14)
  1. LOMOTIL [Concomitant]
     Active Substance: ATROPINE SULFATE\DIPHENOXYLATE HYDROCHLORIDE
  2. LONSURF [Concomitant]
     Active Substance: TIPIRACIL HYDROCHLORIDE\TRIFLURIDINE
  3. DURAGESIC [Concomitant]
     Active Substance: FENTANYL
  4. CABOMETYX [Suspect]
     Active Substance: CABOZANTINIB S-MALATE
     Indication: COLON CANCER
     Dosage: 40 MG, QD
     Route: 048
     Dates: start: 201708, end: 20170825
  5. PROMETHAZINE [Concomitant]
     Active Substance: PROMETHAZINE\PROMETHAZINE HYDROCHLORIDE
  6. CABOMETYX [Suspect]
     Active Substance: CABOZANTINIB S-MALATE
     Indication: METASTASES TO LUNG
     Dosage: 40 MG, QD
     Route: 048
     Dates: start: 20170901
  7. CABOMETYX [Suspect]
     Active Substance: CABOZANTINIB S-MALATE
     Indication: RENAL CANCER
     Dosage: 60 MG, QD
     Route: 048
     Dates: start: 20170621
  8. NORVASC [Concomitant]
     Active Substance: AMLODIPINE BESYLATE
  9. COLCRYS [Concomitant]
     Active Substance: COLCHICINE
  10. MEGESTROL ACETATE. [Concomitant]
     Active Substance: MEGESTROL ACETATE
  11. NORCO [Concomitant]
     Active Substance: ACETAMINOPHEN\HYDROCODONE BITARTRATE
  12. ONDANSETRON [Concomitant]
     Active Substance: ONDANSETRON
  13. VITAMIN D [Concomitant]
     Active Substance: CHOLECALCIFEROL
  14. LISINOPRIL. [Concomitant]
     Active Substance: LISINOPRIL

REACTIONS (4)
  - Vomiting [Unknown]
  - Abdominal discomfort [Unknown]
  - Fatigue [Unknown]
  - Diarrhoea [Not Recovered/Not Resolved]
